FAERS Safety Report 5139243-0 (Version None)
Quarter: 2006Q4

REPORT INFORMATION
  Report Type: 
  Country: None (occurrence: None)
  Receive Date: 20061024
  Receipt Date: 20061011
  Transmission Date: 20070319
  Serious: Yes (Hospitalization, Other)
  Sender: FDA-Public Use
  Company Number: 236753K06USA

PATIENT
  Sex: Female

DRUGS (1)
  1. REBIF [Suspect]
     Indication: MULTIPLE SCLEROSIS
     Dates: start: 20060301

REACTIONS (7)
  - ABSCESS [None]
  - DEPRESSION [None]
  - FEELING HOT [None]
  - NASAL SEPTAL OPERATION [None]
  - SEASONAL ALLERGY [None]
  - TONSILLECTOMY [None]
  - WEIGHT INCREASED [None]
